FAERS Safety Report 8176189-8 (Version None)
Quarter: 2012Q1

REPORT INFORMATION
  Report Type: 
  Country: None (occurrence: None)
  Receive Date: 20120301
  Receipt Date: 20120220
  Transmission Date: 20120608
  Serious: Yes (Other)
  Sender: FDA-Public Use
  Company Number: CZ-JNJFOC-20120104110

PATIENT
  Sex: Male
  Weight: 94 kg

DRUGS (9)
  1. ALL OTHER THERAPEUTIC PRODUCT [Concomitant]
     Route: 065
  2. PREDNISONE TAB [Concomitant]
     Route: 065
  3. REMICADE [Suspect]
     Route: 042
     Dates: start: 20110707
  4. MESALAMINE [Concomitant]
     Dosage: 4X2
     Route: 065
  5. REMICADE [Suspect]
     Indication: COLITIS ULCERATIVE
     Route: 042
     Dates: start: 20110523
  6. REMICADE [Suspect]
     Route: 042
     Dates: start: 20111103
  7. REMICADE [Suspect]
     Route: 042
     Dates: start: 20110804
  8. REMICADE [Suspect]
     Route: 042
     Dates: start: 20111003
  9. REMICADE [Suspect]
     Route: 042
     Dates: start: 20110829

REACTIONS (1)
  - CONGESTIVE CARDIOMYOPATHY [None]
